FAERS Safety Report 6333036-4 (Version None)
Quarter: 2009Q3

REPORT INFORMATION
  Report Type: 
  Country: None (occurrence: None)
  Receive Date: 20090828
  Receipt Date: 20090821
  Transmission Date: 20100115
  Serious: Yes (Death, Hospitalization)
  Sender: FDA-Public Use
  Company Number: US-AMGEN-US354664

PATIENT
  Sex: Male
  Weight: 109 kg

DRUGS (3)
  1. NPLATE [Suspect]
     Indication: IDIOPATHIC THROMBOCYTOPENIC PURPURA
     Dates: start: 20090401
  2. COUMADIN [Concomitant]
     Dates: start: 20090301
  3. PREDNISONE TAB [Concomitant]
     Dates: start: 20090301

REACTIONS (4)
  - DEATH [None]
  - SEPSIS [None]
  - THROMBOCYTOPENIA [None]
  - WOUND DEHISCENCE [None]
